FAERS Safety Report 4365979-5 (Version None)
Quarter: 2004Q2

REPORT INFORMATION
  Report Type: 
  Country: None (occurrence: None)
  Receive Date: 20040526
  Receipt Date: 20040503
  Transmission Date: 20050107
  Serious: Yes (Other)
  Sender: FDA-Public Use
  Company Number: 200414691GDDC

PATIENT
  Age: 37 Year
  Sex: Female

DRUGS (6)
  1. LOVENOX [Suspect]
     Indication: PHLEBITIS
     Route: 058
     Dates: start: 20040101
  2. LOVENOX [Suspect]
     Indication: PULMONARY EMBOLISM
     Route: 058
     Dates: start: 20040101
  3. DEPO-PROVERA [Suspect]
     Indication: EPILEPSY
     Route: 051
     Dates: end: 20031208
  4. TOPAMAX [Concomitant]
     Indication: EPILEPSY
     Route: 048
     Dates: start: 19970101
  5. TEGRETOL [Concomitant]
     Indication: EPILEPSY
     Route: 048
     Dates: start: 19970101
  6. DILANTIN [Concomitant]
     Indication: EPILEPSY
     Route: 048
     Dates: start: 19670101

REACTIONS (3)
  - CONVULSION [None]
  - PHLEBITIS [None]
  - PULMONARY EMBOLISM [None]
